FAERS Safety Report 10594609 (Version 1)
Quarter: 2014Q4

REPORT INFORMATION
  Report Type: Spontaneous
  Country: US (occurrence: US)
  Receive Date: 20141120
  Receipt Date: 20141120
  Transmission Date: 20150529
  Serious: No
  Sender: FDA-Public Use
  Company Number: US-TEVA-456829USA

PATIENT
  Sex: Female

DRUGS (1)
  1. BUDESONIDE. [Suspect]
     Active Substance: BUDESONIDE
     Indication: ASTHMA

REACTIONS (6)
  - Dysgeusia [Unknown]
  - Abdominal discomfort [Unknown]
  - Diarrhoea [Unknown]
  - Product odour abnormal [Unknown]
  - Drug ineffective [Unknown]
  - Oropharyngeal pain [Unknown]
